FAERS Safety Report 7706226-3 (Version None)
Quarter: 2011Q3

REPORT INFORMATION
  Report Type: 
  Country: None (occurrence: None)
  Receive Date: 20110824
  Receipt Date: 20110817
  Transmission Date: 20111222
  Serious: Yes (Hospitalization)
  Sender: FDA-Public Use
  Company Number: JP-ROCHE-718159

PATIENT
  Sex: Male
  Weight: 25.7 kg

DRUGS (83)
  1. DIAZEPAM [Suspect]
     Route: 048
     Dates: start: 20100702, end: 20100722
  2. PHENOBARBITAL TAB [Suspect]
     Route: 048
     Dates: start: 20100626, end: 20100709
  3. ACETAMINOPHEN [Suspect]
     Indication: PYREXIA
     Dosage: NOTE: AT THE THERMACOGENESIS PAIN
     Route: 048
     Dates: start: 20100627, end: 20100716
  4. CEFAZOLIN SODIUM [Suspect]
     Route: 041
     Dates: start: 20100622, end: 20100624
  5. LANSOPRAZOLE [Suspect]
     Route: 048
     Dates: start: 20100702, end: 20100709
  6. EPINEPHRINE [Suspect]
     Route: 041
     Dates: start: 20100621, end: 20100621
  7. DIAZEPAM [Suspect]
     Route: 048
     Dates: start: 20100627, end: 20100701
  8. RISPERDAL [Suspect]
     Dosage: FORM: PERORAL LIQUID PREPARATION
     Route: 048
     Dates: start: 20100702, end: 20100714
  9. ALDACTONE [Suspect]
     Route: 048
     Dates: start: 20100705, end: 20100706
  10. DIAZEPAM [Suspect]
     Route: 048
     Dates: start: 20100717, end: 20100717
  11. DIAZEPAM [Suspect]
     Route: 048
     Dates: start: 20100719, end: 20100720
  12. GLYCEOL [Suspect]
     Route: 041
     Dates: start: 20100617, end: 20100618
  13. DECADRON [Suspect]
     Route: 041
     Dates: start: 20100617, end: 20100617
  14. MIDAZOLAM HCL [Suspect]
     Route: 041
     Dates: start: 20100619, end: 20100619
  15. FENTANYL [Suspect]
     Dosage: DOSAGE IS UNCERTAIN
     Route: 041
     Dates: start: 20100621, end: 20100621
  16. FAMOTIDINE [Suspect]
     Route: 048
     Dates: start: 20100626, end: 20100627
  17. ACETAMINOPHEN [Suspect]
     Dosage: NOTE: AT THE THERMACOGENESIS PAIN
     Route: 048
     Dates: start: 20100627, end: 20100716
  18. MORPHINE HCL ELIXIR [Suspect]
     Route: 041
     Dates: start: 20100621, end: 20100625
  19. MORPHINE HCL ELIXIR [Suspect]
     Route: 041
     Dates: start: 20100701, end: 20100709
  20. LAXOBERON [Suspect]
     Route: 048
     Dates: start: 20100620, end: 20100620
  21. DIAZEPAM [Suspect]
     Route: 048
     Dates: start: 20100702, end: 20100712
  22. DIAZEPAM [Suspect]
     Route: 048
     Dates: start: 20100716, end: 20100716
  23. DECADRON [Suspect]
     Route: 041
     Dates: start: 20100623, end: 20100623
  24. MIDAZOLAM HCL [Suspect]
     Route: 041
     Dates: start: 20100621, end: 20100621
  25. MIDAZOLAM HCL [Suspect]
     Route: 041
     Dates: start: 20100621, end: 20100627
  26. ROCURONIUM BROMIDE [Suspect]
     Route: 041
     Dates: start: 20100617, end: 20100617
  27. FLURBIPROFEN [Suspect]
     Route: 041
     Dates: start: 20100709, end: 20100709
  28. PHENOBARBITAL TAB [Suspect]
     Route: 048
     Dates: start: 20100622, end: 20100623
  29. CLINDAMYCIN PHOSPHATE [Suspect]
     Route: 041
     Dates: start: 20100708, end: 20100710
  30. PIPERACILLIN SODIUM [Suspect]
     Dosage: DRUG: PENMALIN
     Route: 041
     Dates: start: 20100715, end: 20100716
  31. BIOFERMIN [Suspect]
     Route: 048
     Dates: start: 20100711, end: 20100718
  32. LASIX [Suspect]
     Route: 048
     Dates: start: 20100626, end: 20100627
  33. LASIX [Suspect]
     Route: 048
     Dates: start: 20100705, end: 20100706
  34. ALDACTONE [Suspect]
     Route: 048
     Dates: start: 20100628, end: 20100704
  35. TRICLORYL [Suspect]
     Route: 048
     Dates: start: 20100701, end: 20100701
  36. MIDAZOLAM HCL [Suspect]
     Route: 041
     Dates: start: 20100709, end: 20100709
  37. ULTIVA [Suspect]
     Dosage: DOSAGE IS UNCERTAIN
     Route: 041
     Dates: start: 20100708, end: 20100708
  38. NICARDIPINE HCL [Suspect]
     Route: 041
     Dates: start: 20100622, end: 20100624
  39. ROCURONIUM BROMIDE [Suspect]
     Route: 041
     Dates: start: 20100706, end: 20100706
  40. XYLOCAINE [Suspect]
     Route: 041
     Dates: start: 20100709, end: 20100709
  41. ANHIBA [Suspect]
     Dosage: 1-2 PIECES PER TIME
     Route: 054
     Dates: start: 20100630, end: 20100716
  42. GLYCERIN [Suspect]
     Indication: CONSTIPATION
     Dosage: FORM: ENEMA, 1 PIECE/ TIME AT OBSTIPATION
     Route: 054
     Dates: start: 20100621
  43. FAMOTIDINE [Suspect]
     Route: 048
     Dates: start: 20100709, end: 20100715
  44. ROCEPHIN [Suspect]
     Indication: INFECTION
     Route: 041
     Dates: start: 20100630, end: 20100707
  45. VICCILLIN [Suspect]
     Route: 041
     Dates: start: 20100625, end: 20100630
  46. LACTOBACILLUS CASEI [Suspect]
     Dosage: DRUG: BIOLACTIS
     Route: 048
     Dates: start: 20100702, end: 20100709
  47. ULTIVA [Suspect]
     Dosage: DOSAGE IS UNCERTAIN
     Route: 041
     Dates: start: 20100621, end: 20100621
  48. ROCURONIUM BROMIDE [Suspect]
     Route: 041
     Dates: start: 20100619, end: 20100619
  49. ATARAX [Suspect]
     Route: 041
     Dates: start: 20100709, end: 20100709
  50. OFLOXACIN [Suspect]
     Dosage: DOSAGE IS UNCERTAIN
     Route: 047
     Dates: start: 20100728, end: 20100729
  51. HYALEIN [Suspect]
     Dosage: DOSAGE IS UNCERTAIN
     Route: 047
     Dates: start: 20100723, end: 20100821
  52. LANSOPRAZOLE [Suspect]
     Route: 048
     Dates: start: 20100702, end: 20100728
  53. TRICLORYL [Suspect]
     Route: 048
     Dates: start: 20100628, end: 20100628
  54. TRICLORYL [Suspect]
     Route: 048
     Dates: start: 20100630, end: 20100630
  55. OMEPRAZOLE [Suspect]
     Route: 041
     Dates: start: 20100716, end: 20100721
  56. DIAZEPAM [Suspect]
     Route: 048
     Dates: start: 20100713, end: 20100715
  57. DIAZEPAM [Suspect]
     Route: 048
     Dates: start: 20100721, end: 20100721
  58. DIAZEPAM [Suspect]
     Route: 048
     Dates: start: 20100722, end: 20100722
  59. DECADRON [Suspect]
     Route: 041
     Dates: start: 20100622, end: 20100622
  60. ATROPINE SULFATE [Suspect]
     Route: 041
     Dates: start: 20100619, end: 20100619
  61. MIDAZOLAM HCL [Suspect]
     Route: 041
     Dates: start: 20100617, end: 20100617
  62. CALCICOL [Suspect]
     Route: 041
     Dates: start: 20100621, end: 20100621
  63. ROCURONIUM BROMIDE [Suspect]
     Route: 041
     Dates: start: 20100621, end: 20100621
  64. FAMOTIDINE [Suspect]
     Route: 041
     Dates: start: 20100617, end: 20100626
  65. DIAZEPAM [Suspect]
     Route: 048
     Dates: start: 20100622, end: 20100626
  66. PHENOBARBITAL TAB [Suspect]
     Route: 048
     Dates: start: 20100624, end: 20100625
  67. ALDACTONE [Suspect]
     Route: 048
     Dates: start: 20100626, end: 20100627
  68. TRICLORYL [Suspect]
     Route: 048
     Dates: start: 20100702, end: 20100702
  69. TRICLORYL [Suspect]
     Route: 048
     Dates: start: 20100705, end: 20100705
  70. DIAZEPAM [Suspect]
     Route: 048
     Dates: start: 20100718, end: 20100718
  71. HEPARINE NOVO [Suspect]
     Route: 041
     Dates: start: 20100808, end: 20100812
  72. ATROPINE SULFATE [Suspect]
     Route: 041
     Dates: start: 20100617, end: 20100617
  73. FENTANYL [Suspect]
     Dosage: DOSAGE IS UNCERTAIN
     Route: 041
     Dates: start: 20100708, end: 20100708
  74. PRECEDEX [Suspect]
     Route: 041
     Dates: start: 20100704, end: 20100705
  75. LANSOPRAZOLE [Suspect]
     Route: 048
     Dates: start: 20100628, end: 20100701
  76. CEFAZOLIN SODIUM [Suspect]
     Route: 048
     Dates: start: 20100711, end: 20100718
  77. LASIX [Suspect]
     Route: 048
     Dates: start: 20100628, end: 20100704
  78. DEPAS [Suspect]
     Route: 048
     Dates: start: 20100701, end: 20100701
  79. LANSOPRAZOLE [Suspect]
     Route: 048
     Dates: start: 20100721, end: 20100728
  80. HEPARIN SODIUM [Suspect]
     Dosage: DRUG: HEPAFLUSH
     Route: 041
     Dates: start: 20100617
  81. ATROPINE SULFATE [Suspect]
     Route: 041
     Dates: start: 20100622, end: 20100622
  82. XYLOCAINE [Suspect]
     Route: 041
     Dates: start: 20100621, end: 20100621
  83. PANTOL [Suspect]
     Route: 041
     Dates: start: 20100604, end: 20100705

REACTIONS (1)
  - DRUG RASH WITH EOSINOPHILIA AND SYSTEMIC SYMPTOMS [None]
